FAERS Safety Report 6355383-2 (Version None)
Quarter: 2009Q3

REPORT INFORMATION
  Report Type: 
  Country: None (occurrence: None)
  Receive Date: 20090914
  Receipt Date: 20090905
  Transmission Date: 20100115
  Serious: Yes (Other)
  Sender: FDA-Public Use
  Company Number: GB-ABBOTT-09P-167-0595577-00

PATIENT

DRUGS (5)
  1. SEVOFLURANE [Suspect]
     Indication: MAINTENANCE OF ANAESTHESIA
     Route: 055
  2. DICLOFENAC SODIUM [Suspect]
     Indication: PROCEDURAL PAIN
     Route: 054
  3. MORPHINE SULFATE INJ [Suspect]
     Indication: PROCEDURAL PAIN
     Route: 030
  4. NITROUS OXIDE [Concomitant]
     Indication: MAINTENANCE OF ANAESTHESIA
     Route: 055
  5. HARTMANN'S SOLUTION [Concomitant]
     Indication: DRUG USE FOR UNKNOWN INDICATION
     Route: 042

REACTIONS (1)
  - POST PROCEDURAL HAEMORRHAGE [None]
